FAERS Safety Report 5168891-7 (Version None)
Quarter: 2006Q4

REPORT INFORMATION
  Report Type: 
  Country: None (occurrence: None)
  Receive Date: 20061201
  Receipt Date: 20061120
  Transmission Date: 20070319
  Serious: Yes (Other)
  Sender: FDA-Public Use
  Company Number: 2006144252

PATIENT
  Age: 60 Year
  Sex: Male
  Weight: 72.5755 kg

DRUGS (5)
  1. XANAX [Suspect]
     Indication: INSOMNIA
     Dosage: 5 MG (5 MG, 1 IN 1 D), ORAL
     Route: 048
     Dates: start: 20050101
  2. EFFEXOR [Concomitant]
  3. LEVOTHYROXINE SODIUM [Concomitant]
  4. ALLERGY MEDICATION (ALLERGY MEDICATION) [Concomitant]
  5. MULTI-VITAMINS [Concomitant]

REACTIONS (6)
  - BLOOD PRESSURE INCREASED [None]
  - DRUG DOSE OMISSION [None]
  - INCORRECT DOSE ADMINISTERED [None]
  - MUSCLE TWITCHING [None]
  - MYDRIASIS [None]
  - VISION BLURRED [None]
